FAERS Safety Report 13176800 (Version 4)
Quarter: 2017Q4

REPORT INFORMATION
  Report Type: Report from Study
  Country: None (occurrence: JP)
  Receive Date: 20170201
  Receipt Date: 20171207
  Transmission Date: 20180320
  Serious: Yes (Hospitalization, Other)
  Sender: FDA-Public Use
  Company Number: JP-ABBVIE-14P-087-1198358-00

PATIENT
  Age: 6 Year
  Sex: Female

DRUGS (62)
  1. LIPACREON [Suspect]
     Active Substance: PANCRELIPASE
     Dosage: 2400 MG, QD
     Route: 048
     Dates: start: 20160620, end: 20161024
  2. MUCOSOLVAN [Concomitant]
     Active Substance: AMBROXOL HYDROCHLORIDE
     Indication: CYSTIC FIBROSIS PANCREATIC
     Dosage: 3MILLILITER
     Route: 048
     Dates: start: 20110201, end: 20160307
  3. MUCODYNE [Concomitant]
     Active Substance: CARBOCYSTEINE
     Dosage: UNK
     Route: 048
     Dates: start: 20160308
  4. PENTCILLIN [Concomitant]
     Active Substance: PIPERACILLIN SODIUM
     Indication: PNEUMONIA
     Dosage: 1800MILLIGRAM
     Route: 065
     Dates: start: 20130305, end: 20130308
  5. OZEX [Concomitant]
     Active Substance: TOSUFLOXACIN TOSYLATE
     Indication: BRONCHITIS
     Dosage: 240MILLIGRAM
     Route: 048
     Dates: start: 20131217, end: 20131221
  6. OZEX [Concomitant]
     Active Substance: TOSUFLOXACIN TOSYLATE
     Dosage: UNK
     Route: 048
     Dates: start: 20160916, end: 20160920
  7. MOHRUS [Concomitant]
     Active Substance: KETOPROFEN
     Indication: MYALGIA
     Dosage: 20MILLIGRAM
     Route: 062
     Dates: start: 20140304, end: 20140305
  8. SOLACET D [Concomitant]
     Indication: CYSTIC FIBROSIS PANCREATIC
     Dosage: UNK
     Route: 065
     Dates: start: 20140526, end: 20140526
  9. CEFMETAZOLE SODIUM [Concomitant]
     Active Substance: CEFMETAZOLE SODIUM
     Indication: PRODUCT USED FOR UNKNOWN INDICATION
     Dosage: UNK
     Route: 065
     Dates: start: 20160621
  10. ACETOKEEP 3G [Concomitant]
     Indication: PRODUCT USED FOR UNKNOWN INDICATION
     Dosage: UNK
     Route: 065
     Dates: start: 20160621, end: 20160624
  11. TULOBUTEROL [Concomitant]
     Active Substance: TULOBUTEROL
     Indication: BRONCHITIS
     Dosage: UNK
     Dates: start: 20160916, end: 20160920
  12. PANVITAN [Concomitant]
     Indication: CYSTIC FIBROSIS PANCREATIC
     Dosage: .7GRAM
     Route: 048
     Dates: start: 20111010, end: 20150202
  13. BISOLVON [Concomitant]
     Active Substance: BROMHEXINE HYDROCHLORIDE
     Indication: CYSTIC FIBROSIS PANCREATIC
     Dosage: 2MILLILITER
     Route: 048
     Dates: start: 20110201, end: 20160307
  14. ACETOKEEP 3G [Concomitant]
     Indication: CYSTIC FIBROSIS PANCREATIC
     Dosage: UNK
     Route: 065
     Dates: start: 20170215, end: 20170220
  15. MEIACT [Concomitant]
     Active Substance: CEFDITOREN PIVOXIL
     Indication: PHARYNGITIS
     Dosage: UNK
     Route: 048
     Dates: start: 20150915, end: 20150920
  16. FOSMICIN [Concomitant]
     Active Substance: FOSFOMYCIN CALCIUM
     Indication: ENTERITIS INFECTIOUS
     Dosage: UNK
     Route: 048
     Dates: start: 20160324, end: 20160331
  17. AMITIZA [Suspect]
     Active Substance: LUBIPROSTONE
     Indication: CYSTIC FIBROSIS PANCREATIC
     Dosage: 24 MCG, QD
     Route: 048
     Dates: start: 20161222
  18. SINGULAIR [Concomitant]
     Active Substance: MONTELUKAST SODIUM
     Indication: CYSTIC FIBROSIS PANCREATIC
     Dosage: 4MILLIGRAM
     Route: 048
     Dates: start: 20080129, end: 20130308
  19. MIYA-BM [Concomitant]
     Active Substance: CLOSTRIDIUM BUTYRICUM SPORES STRAIN M-55
     Indication: CYSTIC FIBROSIS PANCREATIC
     Dosage: 1GRAM
     Route: 048
     Dates: start: 20100309
  20. FOSMICIN [Concomitant]
     Active Substance: FOSFOMYCIN CALCIUM
     Dosage: UNK
     Route: 048
     Dates: start: 20160610, end: 20160620
  21. BAKTAR [Concomitant]
     Active Substance: SULFAMETHOXAZOLE\TRIMETHOPRIM
     Indication: CYSTIC FIBROSIS PANCREATIC
     Dosage: UNK
     Route: 048
     Dates: start: 20161111, end: 20161115
  22. BIOFERMIN [Concomitant]
     Active Substance: BACILLUS SUBTILIS\LACTOBACILLUS ACIDOPHILUS\STREPTOCOCCUS FAECAIS
     Indication: CYSTIC FIBROSIS PANCREATIC
     Dosage: 1GRAM
     Route: 048
     Dates: start: 20100209
  23. CEFOTAXIME [Concomitant]
     Active Substance: CEFOTAXIME SODIUM
     Dosage: UNK
     Route: 065
     Dates: start: 20170703, end: 20170706
  24. SOLACET D [Concomitant]
     Dosage: UNK
     Route: 065
     Dates: start: 20160621, end: 20160621
  25. ACELIO [Concomitant]
     Active Substance: ACETAMINOPHEN
     Dosage: UNK
     Route: 065
     Dates: start: 20170703, end: 20170704
  26. LIPACREON [Suspect]
     Active Substance: PANCRELIPASE
     Dosage: 1500 MG, QD
     Route: 048
     Dates: start: 20140107, end: 20160619
  27. PULMOZYME [Concomitant]
     Active Substance: DORNASE ALFA
     Indication: CYSTIC FIBROSIS PANCREATIC
     Dosage: 2.5MILLIGRAM
     Route: 055
     Dates: start: 20120807
  28. JUVELA [Concomitant]
     Active Substance: .ALPHA.-TOCOPHEROL\RETINOL
     Indication: ANGULAR CHEILITIS
     Dosage: .8GRAM
     Route: 048
     Dates: start: 20150203, end: 20170605
  29. SODIUM CHLORIDE. [Concomitant]
     Active Substance: SODIUM CHLORIDE
     Indication: CYSTIC FIBROSIS PANCREATIC
     Dosage: 6MILLILITERTID
     Route: 061
     Dates: start: 20100622, end: 20141007
  30. SODIUM CHLORIDE. [Concomitant]
     Active Substance: SODIUM CHLORIDE
     Dosage: UNK
     Route: 055
     Dates: start: 20160308
  31. MUCODYNE [Concomitant]
     Active Substance: CARBOCYSTEINE
     Indication: CYSTIC FIBROSIS PANCREATIC
     Dosage: 4MILLILITER
     Route: 048
     Dates: start: 20110201, end: 20160307
  32. CEFDITOREN PIVOXIL. [Concomitant]
     Active Substance: CEFDITOREN PIVOXIL
     Indication: UPPER RESPIRATORY TRACT INFLAMMATION
     Dosage: 200MILLIGRAM
     Route: 048
     Dates: start: 20130514, end: 20130519
  33. MOVIPREP [Concomitant]
     Active Substance: ASCORBIC ACID\POLYETHYLENE GLYCOL 3350\POTASSIUM CHLORIDE\SODIUM ASCORBATE\SODIUM CHLORIDE\SODIUM SULFATE
     Indication: PRODUCT USED FOR UNKNOWN INDICATION
     Dosage: UNK
     Dates: start: 20160622
  34. FOSMICIN [Concomitant]
     Active Substance: FOSFOMYCIN CALCIUM
     Dosage: UNK
     Route: 048
     Dates: start: 20161021, end: 20161025
  35. JUVELA N [Concomitant]
     Active Substance: TOCOPHERYL NICOTINATE, D-.ALPHA.
     Indication: CYSTIC FIBROSIS PANCREATIC
     Dosage: UNK
     Route: 048
     Dates: start: 20170606
  36. ASVERIN (TIPEPIDINE HIBENZATE) [Concomitant]
     Active Substance: TIPEPIDINE HIBENZATE
     Indication: BRONCHITIS
     Dosage: UNK
     Route: 048
     Dates: start: 20160916, end: 20160920
  37. MEROPENEM. [Concomitant]
     Active Substance: MEROPENEM
     Indication: CYSTIC FIBROSIS PANCREATIC
     Dosage: UNK
     Route: 065
     Dates: start: 20170215, end: 20170220
  38. LIPACREON [Suspect]
     Active Substance: PANCRELIPASE
     Dosage: 750 MG, QD
     Route: 048
     Dates: start: 20110927, end: 20111107
  39. LIPACREON [Suspect]
     Active Substance: PANCRELIPASE
     Dosage: 1200 MG, QD
     Route: 048
     Dates: start: 20130219, end: 20140106
  40. LIPACREON [Suspect]
     Active Substance: PANCRELIPASE
     Indication: PRODUCT USED FOR UNKNOWN INDICATION
     Dosage: 2700 MG, QD
     Route: 048
     Dates: start: 20161025
  41. JUVELA [Concomitant]
     Active Substance: .ALPHA.-TOCOPHEROL\RETINOL
     Indication: CYSTIC FIBROSIS PANCREATIC
     Dosage: .75GRAM
     Route: 048
     Dates: start: 20111005, end: 20150202
  42. BISOLVON [Concomitant]
     Active Substance: BROMHEXINE HYDROCHLORIDE
     Dosage: UNK
     Route: 048
     Dates: start: 20160308
  43. ACETOKEEP 3G [Concomitant]
     Dosage: UNK
     Route: 065
     Dates: start: 20170703, end: 20170706
  44. CEFON [Concomitant]
     Active Substance: CEFOPERAZONE SODIUM\SULBACTAM SODIUM
     Indication: ENTERITIS INFECTIOUS
     Dosage: UNK
     Route: 065
     Dates: start: 20151212, end: 20151214
  45. VITAMEDIN [Concomitant]
     Active Substance: CYANOCOBALAMIN\PYRIDOXINE HYDROCHLORIDE\THIAMINE
     Indication: CYSTIC FIBROSIS PANCREATIC
     Dosage: UNK
     Route: 048
     Dates: start: 20170606
  46. LIPACREON [Suspect]
     Active Substance: PANCRELIPASE
     Dosage: 900 MG, QD
     Route: 048
     Dates: start: 20111108, end: 20130218
  47. CEFDITOREN PIVOXIL. [Concomitant]
     Active Substance: CEFDITOREN PIVOXIL
     Indication: PHARYNGITIS
     Dosage: 200MILLIGRAM
     Route: 048
     Dates: start: 20130712, end: 20130715
  48. CEFDITOREN PIVOXIL. [Concomitant]
     Active Substance: CEFDITOREN PIVOXIL
     Indication: BRONCHITIS
     Dosage: 200MILLIGRAM
     Route: 048
     Dates: start: 20140801, end: 20140805
  49. CEFOTAXIME [Concomitant]
     Active Substance: CEFOTAXIME SODIUM
     Indication: PNEUMONIA
     Dosage: 1650MILLIGRAM
     Route: 065
     Dates: start: 20130308, end: 20130309
  50. SOLACET D [Concomitant]
     Dosage: UNK
     Route: 065
     Dates: start: 20160412, end: 20160412
  51. SOLACET D [Concomitant]
     Dosage: UNK
     Route: 065
     Dates: start: 20170215, end: 20170215
  52. ERYTHROCIN [Concomitant]
     Active Substance: ERYTHROMYCIN LACTOBIONATE
     Indication: CYSTIC FIBROSIS PANCREATIC
     Dosage: UNK
     Route: 048
     Dates: start: 20130309
  53. MUCOSAL [Concomitant]
     Indication: CYSTIC FIBROSIS PANCREATIC
     Dosage: UNK
     Route: 048
     Dates: start: 20160308
  54. LIPACREON [Suspect]
     Active Substance: PANCRELIPASE
     Indication: PANCREATIC FAILURE
     Dosage: 525 MG, QD
     Route: 048
     Dates: start: 20110913, end: 20110926
  55. LAC-B [Concomitant]
     Active Substance: BIFIDOBACTERIUM SPP.
     Indication: CYSTIC FIBROSIS PANCREATIC
     Dosage: 1GRAM
     Route: 048
     Dates: start: 20100209
  56. PANVITAN [Concomitant]
     Indication: ANGULAR CHEILITIS
     Dosage: 1GRAM
     Route: 048
     Dates: start: 20150203, end: 20170605
  57. ERYTHROCIN [Concomitant]
     Active Substance: ERYTHROMYCIN LACTOBIONATE
     Indication: CYSTIC FIBROSIS PANCREATIC
     Dosage: 300MILLIGRAM
     Route: 048
     Dates: start: 20130309
  58. SOLACET D [Concomitant]
     Dosage: UNK
     Route: 065
     Dates: start: 20170703, end: 20170703
  59. ANTI TUSSIVE DRUG [Concomitant]
     Indication: UPPER RESPIRATORY TRACT INFLAMMATION
     Dosage: UNK
     Dates: start: 20130724
  60. MAGMITT [Concomitant]
     Active Substance: MAGNESIUM OXIDE
     Indication: CYSTIC FIBROSIS PANCREATIC
     Dosage: UNK
     Route: 048
     Dates: start: 20161018, end: 20161219
  61. BAKTAR [Concomitant]
     Active Substance: SULFAMETHOXAZOLE\TRIMETHOPRIM
     Dosage: UNK
     Route: 048
     Dates: start: 20170718, end: 20170726
  62. ACELIO [Concomitant]
     Active Substance: ACETAMINOPHEN
     Indication: CYSTIC FIBROSIS PANCREATIC
     Dosage: UNK
     Route: 065
     Dates: start: 20170216, end: 20170217

REACTIONS (11)
  - Enteritis infectious [Recovered/Resolved]
  - Distal intestinal obstruction syndrome [Recovered/Resolved]
  - Back pain [Recovered/Resolved]
  - Bronchitis [Recovered/Resolved]
  - Dehydration [Recovered/Resolved]
  - Upper respiratory tract inflammation [Recovered/Resolved]
  - Angular cheilitis [Recovered/Resolved]
  - Distal intestinal obstruction syndrome [Recovered/Resolved]
  - Bronchitis [Recovered/Resolved]
  - Pharyngitis [Recovered/Resolved]
  - Myalgia [Recovered/Resolved]

NARRATIVE: CASE EVENT DATE: 20130514
